FAERS Safety Report 7952935-0 (Version None)
Quarter: 2011Q4

REPORT INFORMATION
  Report Type: 
  Country: None (occurrence: None)
  Receive Date: 20111201
  Receipt Date: 20111122
  Transmission Date: 20120403
  Serious: Yes (Other)
  Sender: FDA-Public Use
  Company Number: FR-ABBOTT-11P-056-0863295-00

PATIENT
  Weight: 60 kg

DRUGS (5)
  1. ACTONEL WITH CALCIUM (COPACKAGED) [Concomitant]
     Indication: OSTEOPOROSIS
     Route: 048
     Dates: start: 20070101
  2. SERENOA REPENS [Concomitant]
     Indication: PROSTATIC ADENOMA
     Route: 048
  3. LANSOPRAZOLE [Concomitant]
     Indication: GASTRIC DISORDER
     Route: 048
  4. PREDNISONE TAB [Concomitant]
     Indication: PRODUCT USED FOR UNKNOWN INDICATION
     Dosage: 9 MG DAILY
     Route: 048
  5. HUMIRA [Suspect]
     Indication: TUMOUR NECROSIS FACTOR RECEPTOR-ASSOCIATED PERIODIC SYNDROME
     Route: 058
     Dates: start: 20070301, end: 20111001

REACTIONS (4)
  - PERIPHERAL ARTERY ANEURYSM [None]
  - ARTERIOSCLEROSIS [None]
  - KNEE ARTHROPLASTY [None]
  - ARTERIAL THROMBOSIS LIMB [None]
